FAERS Safety Report 16919341 (Version 1)
Quarter: 2019Q4

REPORT INFORMATION
  Report Type: Spontaneous
  Country: GB (occurrence: GB)
  Receive Date: 20191015
  Receipt Date: 20191015
  Transmission Date: 20200122
  Serious: Yes (Hospitalization)
  Sender: FDA-Public Use
  Company Number: GB-MARKSANS PHARMA LIMITED-2075646

PATIENT
  Sex: Female

DRUGS (1)
  1. LORATADINE MOLECULE FROM UK MARKET [Suspect]
     Active Substance: LORATADINE
     Indication: ANTIALLERGIC THERAPY
     Route: 048

REACTIONS (1)
  - Atrial fibrillation [Recovering/Resolving]
